FAERS Safety Report 20452430 (Version 1)
Quarter: 2022Q1

REPORT INFORMATION
  Report Type: Report from Study
  Country: US (occurrence: US)
  Receive Date: 20220210
  Receipt Date: 20220210
  Transmission Date: 20220423
  Serious: Yes (Hospitalization, Disabling, Other)
  Sender: FDA-Public Use
  Company Number: US-ABBVIE-20K-163-3667657-00

PATIENT
  Age: 68 Year
  Sex: Male

DRUGS (1)
  1. HUMIRA [Suspect]
     Active Substance: ADALIMUMAB
     Indication: Crohn^s disease
     Route: 058

REACTIONS (19)
  - Tendon rupture [Not Recovered/Not Resolved]
  - Trigger finger [Unknown]
  - Hypoaesthesia [Not Recovered/Not Resolved]
  - Joint injury [Unknown]
  - Neuropathy peripheral [Not Recovered/Not Resolved]
  - Tendon injury [Not Recovered/Not Resolved]
  - Paraesthesia [Not Recovered/Not Resolved]
  - Diarrhoea [Unknown]
  - Tremor [Not Recovered/Not Resolved]
  - Hypoaesthesia [Not Recovered/Not Resolved]
  - Burning sensation [Not Recovered/Not Resolved]
  - Muscle twitching [Not Recovered/Not Resolved]
  - Dupuytren^s contracture [Not Recovered/Not Resolved]
  - Finger deformity [Unknown]
  - Gait disturbance [Unknown]
  - Joint range of motion decreased [Not Recovered/Not Resolved]
  - Muscular weakness [Unknown]
  - Wheelchair user [Unknown]
  - Trigger finger [Unknown]

NARRATIVE: CASE EVENT DATE: 20201124
